FAERS Safety Report 6451663-0 (Version None)
Quarter: 2009Q4

REPORT INFORMATION
  Report Type: 
  Country: None (occurrence: None)
  Receive Date: 20091123
  Receipt Date: 20091028
  Transmission Date: 20100525
  Serious: Yes (Other)
  Sender: FDA-Public Use
  Company Number: US-AMGEN-QUU366818

PATIENT
  Sex: Male
  Weight: 100.8 kg

DRUGS (2)
  1. ENBREL [Suspect]
     Indication: PSORIATIC ARTHROPATHY
     Route: 058
     Dates: start: 20051031
  2. TRIAMCINOLONE ACETONIDE [Concomitant]

REACTIONS (8)
  - ADENOCARCINOMA [None]
  - DIARRHOEA [None]
  - DYSPEPSIA [None]
  - HEPATITIS [None]
  - POLLAKIURIA [None]
  - PSORIASIS [None]
  - PSORIATIC ARTHROPATHY [None]
  - RHINORRHOEA [None]
